FAERS Safety Report 20231886 (Version 1)
Quarter: 2021Q4

REPORT INFORMATION
  Report Type: Spontaneous
  Country: US (occurrence: None)
  Receive Date: 20211223
  Receipt Date: 20211223
  Transmission Date: 20220304
  Serious: No
  Sender: FDA-Public Use
  Company Number: None

PATIENT
  Age: 47 Year
  Sex: Female
  Weight: 71.1 kg

DRUGS (20)
  1. NITROFURANTOIN MONOHYDRATE MACROCRYSTALS [Suspect]
     Active Substance: NITROFURANTOIN\NITROFURANTOIN MONOHYDRATE
     Indication: Urinary tract infection
     Dosage: FREQUENCY : TWICE A DAY;?
     Route: 048
     Dates: start: 20211221, end: 20211222
  2. Amitroptyline [Concomitant]
  3. FENOFIBRATE [Concomitant]
     Active Substance: FENOFIBRATE
  4. NATAZIA [Concomitant]
     Active Substance: DIENOGEST\ESTRADIOL VALERATE
  5. TOLTERODINE TARTRATE [Concomitant]
     Active Substance: TOLTERODINE TARTRATE
  6. PROPRANOLOL [Concomitant]
     Active Substance: PROPRANOLOL HYDROCHLORIDE
  7. BUPROPION [Concomitant]
     Active Substance: BUPROPION
  8. FEXOFENADINE [Concomitant]
     Active Substance: FEXOFENADINE HYDROCHLORIDE
  9. FLUTICASONE [Concomitant]
     Active Substance: FLUTICASONE
  10. MAGNESIUM CITRATE [Concomitant]
     Active Substance: MAGNESIUM CITRATE
  11. Citracal + D3 [Concomitant]
  12. VITAMIN D3 [Concomitant]
     Active Substance: CHOLECALCIFEROL
  13. LIPOSOMAL VITAMIN C [Concomitant]
  14. HERBALS [Concomitant]
     Active Substance: HERBALS
  15. GLUCOSAMINE [Concomitant]
     Active Substance: GLUCOSAMINE
  16. Chondrointin [Concomitant]
  17. MSM BLEND [Concomitant]
  18. FISH OIL [Concomitant]
     Active Substance: FISH OIL
  19. EPA+DHA Omega 3 [Concomitant]
  20. Zinc pocolinate [Concomitant]

REACTIONS (10)
  - Arthralgia [None]
  - Myalgia [None]
  - Pyrexia [None]
  - Dyspnoea [None]
  - Wheezing [None]
  - Headache [None]
  - Pain [None]
  - Nausea [None]
  - Decreased appetite [None]
  - Fatigue [None]
